FAERS Safety Report 7775112-5 (Version None)
Quarter: 2011Q3

REPORT INFORMATION
  Report Type: 
  Country: None (occurrence: None)
  Receive Date: 20110923
  Receipt Date: 20110913
  Transmission Date: 20111222
  Serious: Yes (Hospitalization)
  Sender: FDA-Public Use
  Company Number: JP-ASTRAZENECA-2011SE56245

PATIENT
  Age: 46 Year
  Sex: Male

DRUGS (5)
  1. SEROQUEL [Suspect]
     Route: 048
     Dates: end: 20110905
  2. SEROQUEL [Suspect]
     Route: 048
     Dates: start: 20110906, end: 20110912
  3. ZYPREXA [Suspect]
     Route: 048
     Dates: start: 20110906, end: 20110912
  4. HYPNOTICS AND SEDATIVES [Concomitant]
     Dates: end: 20110913
  5. ZYPREXA [Suspect]
     Route: 048
     Dates: end: 20110905

REACTIONS (3)
  - NEUTROPENIA [None]
  - DISSEMINATED INTRAVASCULAR COAGULATION [None]
  - INFECTION [None]
